FAERS Safety Report 22175914 (Version 2)
Quarter: 2023Q2

REPORT INFORMATION
  Report Type: Report from Study
  Country: CA (occurrence: CA)
  Receive Date: 20230405
  Receipt Date: 20230427
  Transmission Date: 20230721
  Serious: Yes (Other)
  Sender: FDA-Public Use
  Company Number: CA-JNJFOC-20230307412

PATIENT
  Age: 17 Year
  Sex: Female
  Weight: 57 kg

DRUGS (3)
  1. REMICADE [Suspect]
     Active Substance: INFLIXIMAB
     Indication: Colitis ulcerative
     Dosage: EXPIRY DATE: 31-JUL-2025
     Route: 041
     Dates: start: 20181029
  2. REMICADE [Suspect]
     Active Substance: INFLIXIMAB
     Dosage: 600 MG
     Route: 041
  3. METHOTREXATE [Concomitant]
     Active Substance: METHOTREXATE
     Indication: Inflammatory bowel disease
     Route: 048

REACTIONS (6)
  - Colitis ulcerative [Not Recovered/Not Resolved]
  - Faecal calprotectin abnormal [Unknown]
  - Stress [Unknown]
  - Blood pressure increased [Not Recovered/Not Resolved]
  - Drug level below therapeutic [Unknown]
  - Inappropriate schedule of product administration [Unknown]

NARRATIVE: CASE EVENT DATE: 20230101
